FAERS Safety Report 8352820 (Version 2)
Quarter: 2012Q4

REPORT INFORMATION
  Report Type: 
  Country: US (occurrence: US)
  Receive Date: 20120124
  Receipt Date: 20120927
  Transmission Date: 20130627
  Serious: No
  Sender: FDA-Public Use
  Company Number: US-AMGEN-USASP2011059673

PATIENT
  Age: 75 Year
  Sex: Male

DRUGS (16)
  1. XGEVA [Suspect]
     Indication: METASTASES TO BONE
     Dosage: 120 mg, q4wk
     Route: 058
     Dates: start: 20110228
  2. NEULASTA [Suspect]
     Indication: CHEMOTHERAPY
  3. DOCETAXEL [Concomitant]
  4. ASPIRIN [Concomitant]
  5. DIOVAN [Concomitant]
  6. PLAVIX [Concomitant]
  7. RANITIDINE [Concomitant]
  8. SIMVASTATIN [Concomitant]
  9. TOPROL [Concomitant]
  10. ZOFRAN [Concomitant]
  11. COMPAZINE [Concomitant]
  12. PREDNISONE [Concomitant]
  13. DEXAMETHASONE [Concomitant]
  14. LORAZEPAM [Concomitant]
  15. LOMOTIL [Concomitant]
  16. GLUCOCORTICOIDS [Concomitant]

REACTIONS (2)
  - Toothache [Recovered/Resolved]
  - Pain in jaw [Recovered/Resolved]
